FAERS Safety Report 9843423 (Version 1)
Quarter: 2013Q4

REPORT INFORMATION
  Report Type: Spontaneous
  Country: US (occurrence: None)
  Receive Date: 20131219
  Receipt Date: 20131219
  Transmission Date: 20140711
  Serious: Yes (Death)
  Sender: FDA-Public Use
  Company Number: 163-20785-13074636

PATIENT
  Age: 72 Year
  Sex: Female
  Weight: 52.62 kg

DRUGS (3)
  1. THALOMID [Suspect]
     Indication: PLASMA CELL MYELOMA
     Dosage: 1 IN 1 D
     Route: 048
     Dates: start: 20130130, end: 20130404
  2. PREDNISONE [Concomitant]
  3. CLONAZEPAM [Concomitant]

REACTIONS (1)
  - Death [None]
